FAERS Safety Report 5199759-8 (Version None)
Quarter: 2007Q1

REPORT INFORMATION
  Report Type: 
  Country: None (occurrence: None)
  Receive Date: 20070105
  Receipt Date: 20060330
  Transmission Date: 20070707
  Serious: No
  Sender: FDA-Public Use
  Company Number: US-GLAXOSMITHKLINE-A0599730A

PATIENT
  Sex: Male

DRUGS (2)
  1. TAGAMET [Suspect]
     Indication: PAPILLOMA VIRAL INFECTION
     Dosage: 1600MG TWICE PER DAY
     Route: 048
  2. PROPECIA [Concomitant]

REACTIONS (2)
  - HIV TEST FALSE POSITIVE [None]
  - OVERDOSE [None]
